FAERS Safety Report 10260914 (Version 1)
Quarter: 2014Q2

REPORT INFORMATION
  Report Type: Spontaneous
  Country: IN (occurrence: IN)
  Receive Date: 20140626
  Receipt Date: 20140626
  Transmission Date: 20141212
  Serious: Yes (Other)
  Sender: FDA-Public Use
  Company Number: IN-009507513-1406IND011064

PATIENT
  Age: 55 Year
  Sex: Male
  Weight: 78 kg

DRUGS (1)
  1. JANUMET [Suspect]
     Indication: DIABETES MELLITUS
     Dosage: 50/500 MG, BID
     Route: 048

REACTIONS (4)
  - Spinal disorder [Not Recovered/Not Resolved]
  - Vascular compression [Not Recovered/Not Resolved]
  - Neck pain [Not Recovered/Not Resolved]
  - Pain in extremity [Not Recovered/Not Resolved]
